FAERS Safety Report 7897495-8 (Version None)
Quarter: 2011Q4

REPORT INFORMATION
  Report Type: 
  Country: None (occurrence: None)
  Receive Date: 20111107
  Receipt Date: 20111031
  Transmission Date: 20120403
  Serious: Yes (Hospitalization)
  Sender: FDA-Public Use
  Company Number: AU-NAPPMUNDI-USA-2011-0076830

PATIENT
  Sex: Male

DRUGS (1)
  1. OXYCONTIN [Suspect]
     Indication: ABDOMINAL PAIN UPPER
     Dosage: 80 MG, DAILY
     Route: 048
     Dates: start: 20111013, end: 20111001

REACTIONS (2)
  - INTESTINAL OBSTRUCTION [None]
  - ABDOMINAL PAIN [None]
